FAERS Safety Report 13439731 (Version 1)
Quarter: 2017Q2

REPORT INFORMATION
  Report Type: Spontaneous
  Country: US (occurrence: US)
  Receive Date: 20170413
  Receipt Date: 20170413
  Transmission Date: 20170830
  Serious: Yes (Other)
  Sender: FDA-Public Use
  Company Number: US-THE MENTHOLATUM COMPANY-1065358

PATIENT
  Sex: Female

DRUGS (1)
  1. MENTHOLATUM DEEP HEATING RUB EXTRA STRENGTH [Suspect]
     Active Substance: MENTHOL\METHYL SALICYLATE
     Indication: ARTHRALGIA
     Route: 061
     Dates: start: 20170318, end: 20170318

REACTIONS (2)
  - Erythema [None]
  - Blister [Unknown]

NARRATIVE: CASE EVENT DATE: 20170318
